FAERS Safety Report 20258907 (Version 1)
Quarter: 2021Q4

REPORT INFORMATION
  Report Type: Spontaneous
  Country: US (occurrence: None)
  Receive Date: 20211230
  Receipt Date: 20211230
  Transmission Date: 20220303
  Serious: No
  Sender: FDA-Public Use
  Company Number: None

PATIENT
  Age: 52 Year
  Sex: Female

DRUGS (2)
  1. ETESEVIMAB [Suspect]
     Active Substance: ETESEVIMAB
     Indication: COVID-19
     Dosage: FREQUENCY : AS NEEDED?
     Route: 042
     Dates: start: 20211230, end: 20211230
  2. BAMLANIVIMAB [Suspect]
     Active Substance: BAMLANIVIMAB
     Indication: COVID-19
     Dosage: FREQUENCY : AS NEEDED?
     Route: 042
     Dates: start: 20211230, end: 20211230

REACTIONS (2)
  - Erythema [None]
  - Flushing [None]

NARRATIVE: CASE EVENT DATE: 20211230
